FAERS Safety Report 22317203 (Version 1)
Quarter: 2023Q2

REPORT INFORMATION
  Report Type: Spontaneous
  Country: US (occurrence: US)
  Receive Date: 20230515
  Receipt Date: 20230515
  Transmission Date: 20230721
  Serious: No
  Sender: FDA-Public Use
  Company Number: US-BAUSCHBL-2023BNL004008

PATIENT
  Sex: Male

DRUGS (1)
  1. VYZULTA [Suspect]
     Active Substance: LATANOPROSTENE BUNOD
     Indication: Intraocular pressure increased
     Route: 047
     Dates: start: 202212

REACTIONS (3)
  - Instillation site erythema [Unknown]
  - Instillation site discharge [Unknown]
  - Product quality issue [Unknown]

NARRATIVE: CASE EVENT DATE: 20230501
